FAERS Safety Report 4582836-X (Version None)
Quarter: 2005Q1

REPORT INFORMATION
  Report Type: 
  Country: None (occurrence: None)
  Receive Date: 20050121
  Receipt Date: 20041026
  Transmission Date: 20050727
  Serious: Yes (Other)
  Sender: FDA-Public Use
  Company Number: 2004083678

PATIENT
  Sex: Female

DRUGS (3)
  1. RELPAX [Suspect]
     Indication: MIGRAINE
  2. OMEPRAZOLE (OMEPRAZOLE) [Concomitant]
  3. PAROXETINE HCL [Concomitant]

REACTIONS (1)
  - HAEMATOCHEZIA [None]
